FAERS Safety Report 26133596 (Version 1)
Quarter: 2025Q4

REPORT INFORMATION
  Report Type: Spontaneous
  Country: US (occurrence: US)
  Receive Date: 20251209
  Receipt Date: 20251209
  Transmission Date: 20260117
  Serious: No
  Sender: BOEHRINGER INGELHEIM
  Company Number: US-BoehringerIngelheim-2025-BI-112908

PATIENT
  Age: 73 Year
  Sex: Female

DRUGS (2)
  1. JARDIANCE [Suspect]
     Active Substance: EMPAGLIFLOZIN
     Indication: Product used for unknown indication
  2. DUPILUMAB [Suspect]
     Active Substance: DUPILUMAB
     Indication: Product used for unknown indication
     Dosage: (STRENGTH: 150 MG/ML) SOLUTION FOR INJECTION AT A LOADING DOSE OF 600 MG ONCE SUBCUTANEOUSLY AND THEN MAINTENANCE DOSE OF 300 MG EVERY OTHER WEEK

REACTIONS (14)
  - Pain in jaw [Unknown]
  - Headache [Unknown]
  - Pruritus [Unknown]
  - Therapeutic response decreased [Unknown]
  - Inappropriate schedule of product administration [Unknown]
  - Dry skin [Unknown]
  - Dermatitis atopic [Unknown]
  - Rash [Unknown]
  - Eye discharge [Unknown]
  - Eczema [Unknown]
  - Erythema [Unknown]
  - Rash [Unknown]
  - Toothache [Unknown]
  - Fungal infection [Unknown]

NARRATIVE: CASE EVENT DATE: 20240101
